FAERS Safety Report 7941988-1 (Version None)
Quarter: 2011Q4

REPORT INFORMATION
  Report Type: 
  Country: None (occurrence: None)
  Receive Date: 20111114
  Receipt Date: 20110524
  Transmission Date: 20120403
  Serious: Yes (Other)
  Sender: FDA-Public Use
  Company Number: 2011028706

PATIENT
  Sex: Female

DRUGS (2)
  1. HIZENTRA [Suspect]
  2. HIZENTRA [Suspect]
     Dosage: (20 G 1X/2 ( WEEKS, SELF INFUSES WITH FREEDOM PUMP SUBCUTANEOUS), (SUBCUTANEOUS)
     Route: 058
     Dates: start: 20101005

REACTIONS (5)
  - RASH [None]
  - ASTHENIA [None]
  - TREMOR [None]
  - ABASIA [None]
  - RASH PRURITIC [None]
